FAERS Safety Report 15434713 (Version 2)
Quarter: 2020Q2

REPORT INFORMATION
  Report Type: Spontaneous
  Country: NL (occurrence: NL)
  Receive Date: 20180927
  Receipt Date: 20200504
  Transmission Date: 20200713
  Serious: Yes (Other)
  Sender: FDA-Public Use
  Company Number: PHHY2018NL104557

PATIENT
  Age: 51 Year
  Sex: Male

DRUGS (2)
  1. ESTRADIOL. [Suspect]
     Active Substance: ESTRADIOL
     Indication: TRANSGENDER HORMONAL THERAPY
     Dosage: 100 MICROGRAM DAILY;
     Route: 062
  2. CYPROTERONE [Suspect]
     Active Substance: CYPROTERONE
     Indication: TRANSGENDER HORMONAL THERAPY
     Dosage: 20 MG
     Route: 065

REACTIONS (5)
  - Acoustic neuroma [Unknown]
  - Meningioma [Unknown]
  - Depression [Unknown]
  - Delusion [Unknown]
  - Apathy [Unknown]
